FAERS Safety Report 4511869-4 (Version None)
Quarter: 2004Q4

REPORT INFORMATION
  Report Type: 
  Country: None (occurrence: None)
  Receive Date: 20041129
  Receipt Date: 20041116
  Transmission Date: 20050328
  Serious: Yes (Other)
  Sender: FDA-Public Use
  Company Number: AT-JNJFOC-20041103993

PATIENT
  Sex: Female

DRUGS (1)
  1. MICRONOVUM [Suspect]
     Indication: CONTRACEPTION
     Route: 049

REACTIONS (1)
  - TACHYCARDIA [None]
